FAERS Safety Report 7984148-0 (Version None)
Quarter: 2011Q4

REPORT INFORMATION
  Report Type: 
  Country: None (occurrence: None)
  Receive Date: 20111216
  Receipt Date: 20111214
  Transmission Date: 20120403
  Serious: Yes (Other)
  Sender: FDA-Public Use
  Company Number: US-PFIZER INC-2010134799

PATIENT
  Sex: Female
  Weight: 62.585 kg

DRUGS (7)
  1. CHANTIX [Suspect]
     Dosage: 0.5 MG, 2X/DAY
     Dates: start: 20101001, end: 20101001
  2. CHANTIX [Suspect]
     Dosage: 0.5 MG, 1X/DAY
     Route: 048
     Dates: start: 20101101, end: 20110201
  3. PRAVACHOL [Concomitant]
     Indication: BLOOD CHOLESTEROL INCREASED
     Dosage: 40 MG, 1X/DAY
     Route: 048
     Dates: start: 20100101
  4. CHANTIX [Suspect]
     Dosage: 1 MG, 2X/DAY
     Dates: start: 20101001, end: 20101108
  5. LISINOPRIL AND HYDROCHLOROTHIAZIDE [Concomitant]
     Indication: HYPERTENSION
     Dosage: UNK
     Route: 048
  6. CHANTIX [Suspect]
     Indication: SMOKING CESSATION THERAPY
     Dosage: 0.5 MG, 1X/DAY
     Route: 048
     Dates: start: 20101019, end: 20101001
  7. CELEXA [Concomitant]
     Indication: DEPRESSION
     Dosage: UNK

REACTIONS (15)
  - FLATULENCE [None]
  - DEPRESSION [None]
  - ABNORMAL DREAMS [None]
  - NAUSEA [None]
  - CONFUSIONAL STATE [None]
  - FEELING ABNORMAL [None]
  - NIGHTMARE [None]
  - INSOMNIA [None]
  - AGITATION [None]
  - HALLUCINATION, VISUAL [None]
  - ANXIETY [None]
  - EMOTIONAL DISORDER [None]
  - TREMOR [None]
  - DISTURBANCE IN ATTENTION [None]
  - AGGRESSION [None]
